FAERS Safety Report 13836146 (Version 1)
Quarter: 2017Q3

REPORT INFORMATION
  Report Type: Spontaneous
  Country: US (occurrence: US)
  Receive Date: 20170804
  Receipt Date: 20170804
  Transmission Date: 20171127
  Serious: No
  Sender: FDA-Public Use
  Company Number: US-SHIRE-US201714740

PATIENT

DRUGS (3)
  1. GENTEAL LUBRICANT [Concomitant]
     Indication: PRODUCT USED FOR UNKNOWN INDICATION
     Dosage: IN RIGHT EYE
     Route: 047
  2. SYSTANE BALANCE [Concomitant]
     Active Substance: PROPYLENE GLYCOL
     Indication: PRODUCT USED FOR UNKNOWN INDICATION
     Route: 047
  3. XIIDRA [Suspect]
     Active Substance: LIFITEGRAST
     Indication: PRODUCT USED FOR UNKNOWN INDICATION
     Dosage: 2 GTT, 2X/DAY:BID
     Route: 047

REACTIONS (6)
  - Product use complaint [Not Recovered/Not Resolved]
  - Somnolence [Not Recovered/Not Resolved]
  - Instillation site pain [Not Recovered/Not Resolved]
  - Inability to afford medication [Unknown]
  - Product taste abnormal [Unknown]
  - Off label use [Unknown]
